FAERS Safety Report 7046081-0 (Version None)
Quarter: 2010Q4

REPORT INFORMATION
  Report Type: 
  Country: None (occurrence: None)
  Receive Date: 20101013
  Receipt Date: 20101013
  Transmission Date: 20110411
  Serious: Yes (Life-Threatening, Hospitalization)
  Sender: FDA-Public Use
  Company Number: None

PATIENT
  Age: 58 Year
  Sex: Female
  Weight: 85 kg

DRUGS (2)
  1. HALOPERIDOL [Suspect]
     Indication: NEUROLEPTIC MALIGNANT SYNDROME
     Dosage: 125 MG OTHER IM
     Route: 030
     Dates: start: 20090901, end: 20100701
  2. HALOPERIDOL [Suspect]
     Dosage: 5 MG PO
     Route: 048
     Dates: start: 20070313, end: 20100629

REACTIONS (3)
  - AGGRESSION [None]
  - HYPOGLYCAEMIA [None]
  - NEUROLEPTIC MALIGNANT SYNDROME [None]
